FAERS Safety Report 25234360 (Version 2)
Quarter: 2025Q2

REPORT INFORMATION
  Report Type: Spontaneous
  Country: US (occurrence: US)
  Receive Date: 20250424
  Receipt Date: 20250514
  Transmission Date: 20250716
  Serious: No
  Sender: HETERO
  Company Number: US-HETERO-HET2025US01967

PATIENT
  Age: 65 Year
  Sex: Male
  Weight: 103.4 kg

DRUGS (2)
  1. LEVOFLOXACIN [Suspect]
     Active Substance: LEVOFLOXACIN
     Indication: Ear infection
     Route: 048
     Dates: start: 202504, end: 20250411
  2. PANTOPRAZOLE [Concomitant]
     Active Substance: PANTOPRAZOLE
     Indication: Product used for unknown indication
     Route: 065

REACTIONS (2)
  - Pain in extremity [Not Recovered/Not Resolved]
  - Tendon pain [Not Recovered/Not Resolved]

NARRATIVE: CASE EVENT DATE: 20250410
